FAERS Safety Report 11587866 (Version 2)
Quarter: 2015Q4

REPORT INFORMATION
  Report Type: Spontaneous
  Country: NL (occurrence: NL)
  Receive Date: 20151001
  Receipt Date: 20151006
  Transmission Date: 20160304
  Serious: Yes (Hospitalization)
  Sender: FDA-Public Use
  Company Number: PHHY2015NL118510

PATIENT
  Sex: Female
  Weight: 60 kg

DRUGS (1)
  1. METHYLPHENIDATE. [Suspect]
     Active Substance: METHYLPHENIDATE
     Indication: ATTENTION DEFICIT/HYPERACTIVITY DISORDER
     Dosage: 10 MG, TID
     Route: 065
     Dates: start: 20141101, end: 20150901

REACTIONS (3)
  - Malaise [Recovered/Resolved with Sequelae]
  - Muscle spasms [Recovered/Resolved with Sequelae]
  - Weight decreased [Recovered/Resolved with Sequelae]

NARRATIVE: CASE EVENT DATE: 20150402
